FAERS Safety Report 6075086-1 (Version None)
Quarter: 2009Q1

REPORT INFORMATION
  Report Type: 
  Country: None (occurrence: None)
  Receive Date: 20090210
  Receipt Date: 20090210
  Transmission Date: 20090719
  Serious: Yes (Hospitalization)
  Sender: FDA-Public Use
  Company Number: None

PATIENT
  Sex: Female
  Weight: 84 kg

DRUGS (9)
  1. SUNITINIB [Suspect]
     Indication: RENAL CANCER METASTATIC
     Dosage: 50 MG DAILY ORAL
     Route: 048
     Dates: start: 20081027, end: 20081117
  2. SUNITINIB [Suspect]
     Indication: RENAL CANCER METASTATIC
     Dosage: 37.5 MG DAILY ORAL
     Route: 048
     Dates: start: 20081203, end: 20090207
  3. ARANESP [Concomitant]
  4. NORVASC [Concomitant]
  5. SYNTHROID [Concomitant]
  6. PROTONIX [Concomitant]
  7. COMPAZINE [Concomitant]
  8. ZOFRAN [Concomitant]
  9. BENICAR HCT [Concomitant]

REACTIONS (1)
  - DIVERTICULITIS [None]
